FAERS Safety Report 21333856 (Version 3)
Quarter: 2022Q4

REPORT INFORMATION
  Report Type: Spontaneous
  Country: US (occurrence: US)
  Receive Date: 20220914
  Receipt Date: 20221116
  Transmission Date: 20230113
  Serious: No
  Sender: FDA-Public Use
  Company Number: US-BAXTER-2022BAX019651

PATIENT
  Age: 22 Year
  Sex: Female

DRUGS (1)
  1. MAGNESIUM SULFATE HEPTAHYDRATE [Suspect]
     Active Substance: MAGNESIUM SULFATE HEPTAHYDRATE
     Indication: Hypomagnesaemia
     Dosage: 2 GRAM/50 MILLILITERS OVER 30 MINUTES
     Route: 042
     Dates: start: 20220912, end: 20220912

REACTIONS (3)
  - Infusion site pain [Recovered/Resolved]
  - Burning sensation [Recovered/Resolved]
  - Pain [Unknown]

NARRATIVE: CASE EVENT DATE: 20220901
